FAERS Safety Report 8340413-9 (Version None)
Quarter: 2012Q2

REPORT INFORMATION
  Report Type: 
  Country: None (occurrence: None)
  Receive Date: 20120507
  Receipt Date: 20120507
  Transmission Date: 20120825
  Serious: Yes (Other)
  Sender: FDA-Public Use
  Company Number: None

PATIENT
  Age: 47 Year
  Sex: Male
  Weight: 83.914 kg

DRUGS (1)
  1. HP-PAC (LANSOPRAZOLE/CLARITHROMYCIN/AMOXICILLIN) [Suspect]
     Indication: GASTROINTESTINAL DISORDER
     Dosage: |DOSAGETEXT: 30-500-500||STRENGTH: 30-500-500||FREQ: 2 X /DAY||ROUTE: ORAL|
     Route: 048
     Dates: start: 20120420, end: 20120427

REACTIONS (2)
  - ABDOMINAL DISCOMFORT [None]
  - ALLERGY TO CHEMICALS [None]
